FAERS Safety Report 20651814 (Version 1)
Quarter: 2022Q1

REPORT INFORMATION
  Report Type: Other
  Country: FR (occurrence: FR)
  Receive Date: 20220330
  Receipt Date: 20220330
  Transmission Date: 20220423
  Serious: Yes (Hospitalization)
  Sender: FDA-Public Use
  Company Number: None

PATIENT

DRUGS (3)
  1. PAROXETINE [Suspect]
     Active Substance: PAROXETINE
     Indication: Product used for unknown indication
     Dosage: UNK
     Route: 064
  2. COMIRNATY [Suspect]
     Active Substance: TOZINAMERAN
     Indication: Product used for unknown indication
     Dosage: UNK
     Route: 065
  3. COMIRNATY [Suspect]
     Active Substance: TOZINAMERAN
     Dosage: UNK
     Route: 065

REACTIONS (2)
  - Perinatal stroke [Recovering/Resolving]
  - Pulmonary arterial hypertension [Recovering/Resolving]

NARRATIVE: CASE EVENT DATE: 20211227
